FAERS Safety Report 5511905-2 (Version None)
Quarter: 2007Q4

REPORT INFORMATION
  Report Type: 
  Country: None (occurrence: None)
  Receive Date: 20071109
  Receipt Date: 20071105
  Transmission Date: 20080405
  Serious: Yes (Other)
  Sender: FDA-Public Use
  Company Number: JP-ABBOTT-07P-087-0423386-00

PATIENT
  Age: 35 Year
  Sex: Male

DRUGS (7)
  1. SEVOFLURANE [Suspect]
     Indication: MAINTENANCE OF ANAESTHESIA
     Route: 055
  2. SEVOFLURANE [Suspect]
     Dosage: NOT REPORTED
  3. REMIFENTANIL HYDROCHLORIDE [Suspect]
     Indication: MAINTENANCE OF ANAESTHESIA
     Route: 042
  4. REMIFENTANIL HYDROCHLORIDE [Suspect]
  5. PYRIDOSTIGMINE BROMIDE [Suspect]
     Indication: PREMEDICATION
     Route: 048
  6. PROPOFOL [Concomitant]
     Indication: ANAESTHESIA
     Route: 042
  7. FENTANYL [Concomitant]
     Indication: ANAESTHESIA
     Route: 042

REACTIONS (2)
  - BRADYCARDIA [None]
  - CARDIAC ARREST [None]
